FAERS Safety Report 5004496-6 (Version None)
Quarter: 2006Q2

REPORT INFORMATION
  Report Type: 
  Country: None (occurrence: None)
  Receive Date: 20060516
  Receipt Date: 20060516
  Transmission Date: 20061013
  Serious: Yes (Hospitalization)
  Sender: FDA-Public Use
  Company Number: None

PATIENT
  Sex: Male
  Weight: 80.7403 kg

DRUGS (4)
  1. AVASTIN [Suspect]
     Indication: RECTAL CANCER
     Dosage: 5MG/KG = 416 MG  Q2WKS X 3 CYCLES  IV
     Route: 042
     Dates: start: 20060428
  2. OXALIPLATIN [Suspect]
     Indication: RECTAL CANCER
     Dosage: 85MG/M2 = 176MG   Q2WKS X 3 CYCLES  IV
     Route: 042
     Dates: start: 20060428
  3. FLUOROURACIL [Suspect]
     Dosage: 400MG/M2    Q2WKS X 3CYCLES   IV
     Route: 042
     Dates: start: 20060428
  4. FLUOROURACIL [Suspect]
     Dosage: 2400MG/M2   Q2WKS/46HOURS   CIVI
     Route: 042
     Dates: start: 20060428

REACTIONS (3)
  - ANXIETY [None]
  - DEPRESSION [None]
  - POST PROCEDURAL DIARRHOEA [None]
